FAERS Safety Report 9285009 (Version 3)
Quarter: 2013Q2

REPORT INFORMATION
  Report Type: Spontaneous
  Country: JP (occurrence: JP)
  Receive Date: 20130513
  Receipt Date: 20130614
  Transmission Date: 20140414
  Serious: No
  Sender: FDA-Public Use
  Company Number: JP-009507513-1305JPN005316

PATIENT
  Age: 56 Year
  Sex: Male
  Weight: 66 kg

DRUGS (6)
  1. PEGINTRON [Suspect]
     Dosage: 15 MICROGRAM PER KILOGRAM, QW
     Route: 058
  2. REBETOL [Suspect]
     Indication: CHRONIC HEPATITIS C
     Dosage: 800 MG, QD
     Route: 048
     Dates: end: 20130422
  3. REBETOL [Suspect]
     Dosage: 400 MG, QD
     Route: 048
     Dates: start: 20130430, end: 20130506
  4. REBETOL [Suspect]
     Dosage: 400 MG, QD
     Route: 048
     Dates: start: 20130514
  5. TELAVIC [Suspect]
     Indication: CHRONIC HEPATITIS C
     Dosage: 2.25 G, QD
     Route: 048
     Dates: start: 20130219, end: 20130422
  6. TELAVIC [Suspect]
     Dosage: 1.5 G, QD
     Route: 048
     Dates: start: 20130514

REACTIONS (1)
  - Anaemia [Recovering/Resolving]
